FAERS Safety Report 25867575 (Version 1)
Quarter: 2025Q4

REPORT INFORMATION
  Report Type: Spontaneous
  Country: EU (occurrence: EU)
  Receive Date: 20251001
  Receipt Date: 20251001
  Transmission Date: 20260117
  Serious: Yes (Other)
  Sender: CHEPLAPHARM
  Company Number: None

PATIENT
  Age: 15 Year
  Sex: Male
  Weight: 73 kg

DRUGS (3)
  1. CLONAZEPAM [Suspect]
     Active Substance: CLONAZEPAM
     Indication: Suicidal ideation
     Dosage: 12 TABLETS OF RIVOTRIL 0.5 MG?DAILY DOSE: 6 MILLIGRAM
     Route: 048
     Dates: start: 20250710, end: 20250710
  2. OXAZEPAM [Suspect]
     Active Substance: OXAZEPAM
     Indication: Suicidal ideation
     Dosage: TOOK 40 TABLETS OF OXAZEPAM 15 MG?DAILY DOSE: 600 MILLIGRAM
     Route: 048
     Dates: start: 20250710, end: 20250710
  3. DIAZEPAM [Suspect]
     Active Substance: DIAZEPAM
     Indication: Suicidal ideation
     Dosage: 1 DF= 1 TABLET?DAILY DOSE: 9 DOSAGE FORM
     Route: 048
     Dates: start: 20250710, end: 20250710

REACTIONS (5)
  - Suicide attempt [Unknown]
  - Intentional overdose [Unknown]
  - Somnolence [Unknown]
  - Aggression [Unknown]
  - Sluggishness [Unknown]

NARRATIVE: CASE EVENT DATE: 20250710
